FAERS Safety Report 18777827 (Version 2)
Quarter: 2021Q2

REPORT INFORMATION
  Report Type: Spontaneous
  Country: US (occurrence: US)
  Receive Date: 20210122
  Receipt Date: 20210423
  Transmission Date: 20210717
  Serious: No
  Sender: FDA-Public Use
  Company Number: 2020SGN03431

PATIENT
  Age: 57 Year
  Sex: Female

DRUGS (3)
  1. TUKYSA [Suspect]
     Active Substance: TUCATINIB
     Dosage: 300 MG, BID
  2. TUKYSA [Suspect]
     Active Substance: TUCATINIB
     Indication: BREAST CANCER FEMALE
     Dosage: UNK
  3. FENTANYL. [Suspect]
     Active Substance: FENTANYL

REACTIONS (11)
  - Mental disorder [Unknown]
  - Malignant neoplasm progression [Unknown]
  - Diarrhoea [Unknown]
  - Brain neoplasm [Unknown]
  - Amnesia [Unknown]
  - Fatigue [Unknown]
  - Headache [Unknown]
  - Unevaluable event [Unknown]
  - Product dose omission issue [Unknown]
  - Weight decreased [Unknown]
  - Illness [Unknown]

NARRATIVE: CASE EVENT DATE: 20200821
